FAERS Safety Report 4540862-0 (Version None)
Quarter: 2004Q4

REPORT INFORMATION
  Report Type: 
  Country: None (occurrence: None)
  Receive Date: 20041228
  Receipt Date: 20041220
  Transmission Date: 20050328
  Serious: Yes (Hospitalization)
  Sender: FDA-Public Use
  Company Number: 2004CG02556

PATIENT
  Age: 51 Year
  Sex: Male

DRUGS (6)
  1. DIPRIVAN [Suspect]
     Indication: ANAESTHESIA
     Dates: start: 20041011, end: 20041011
  2. NAROPIN [Suspect]
     Indication: LOCAL ANAESTHESIA
     Dosage: 30 ML ONCE RNB
     Route: 056
     Dates: start: 20041011, end: 20041011
  3. SUFENTA [Suspect]
     Indication: ANAESTHESIA
     Dates: start: 20041011, end: 20041011
  4. TACRIUM ^BURROUGHS WELLCOME^ [Suspect]
     Indication: ANAESTHESIA
     Dates: start: 20041011, end: 20041011
  5. VANCOMYCIN [Suspect]
     Dosage: 1 G ONCE IV
     Route: 042
     Dates: start: 20041011, end: 20041011
  6. LODOZ [Concomitant]

REACTIONS (3)
  - BLOOD PRESSURE DECREASED [None]
  - CIRCULATORY COLLAPSE [None]
  - RASH ERYTHEMATOUS [None]
